FAERS Safety Report 4361305-6 (Version None)
Quarter: 2004Q2

REPORT INFORMATION
  Report Type: 
  Country: None (occurrence: None)
  Receive Date: 20040520
  Receipt Date: 20040510
  Transmission Date: 20050107
  Serious: Yes (Other)
  Sender: FDA-Public Use
  Company Number: PHEH2004US05146

PATIENT
  Age: 52 Year
  Sex: Female

DRUGS (3)
  1. ZELNORM [Suspect]
     Indication: CREST SYNDROME
     Dosage: 6 MG, BID
     Route: 048
     Dates: start: 20040507, end: 20040510
  2. NEXIUM [Concomitant]
     Indication: GASTROOESOPHAGEAL REFLUX DISEASE
  3. BEXTRA [Concomitant]
     Indication: PAIN

REACTIONS (1)
  - DIARRHOEA HAEMORRHAGIC [None]
